FAERS Safety Report 6707805-2 (Version None)
Quarter: 2010Q2

REPORT INFORMATION
  Report Type: 
  Country: None (occurrence: None)
  Receive Date: 20100503
  Receipt Date: 20091014
  Transmission Date: 20101027
  Serious: No
  Sender: FDA-Public Use
  Company Number: US-ASTRAZENECA-2009SE20229

PATIENT
  Age: 551 Month
  Sex: Female

DRUGS (6)
  1. NEXIUM [Suspect]
     Indication: GASTROOESOPHAGEAL REFLUX DISEASE
     Route: 048
  2. TRICOR [Concomitant]
  3. SYNTHROID [Concomitant]
  4. PRIMARIN [Concomitant]
  5. CYMBALTA [Concomitant]
  6. ENTOCORT EC [Concomitant]

REACTIONS (2)
  - CROHN'S DISEASE [None]
  - THROAT IRRITATION [None]
